FAERS Safety Report 5554503-7 (Version None)
Quarter: 2007Q4

REPORT INFORMATION
  Report Type: 
  Country: None (occurrence: None)
  Receive Date: 20071213
  Receipt Date: 20070727
  Transmission Date: 20080405
  Serious: No
  Sender: FDA-Public Use
  Company Number: US-AMGEN-KDL236410

PATIENT
  Sex: Male

DRUGS (1)
  1. ENBREL [Suspect]
     Indication: RHEUMATOID ARTHRITIS
     Route: 058
     Dates: start: 20061201

REACTIONS (6)
  - ARTHROPOD BITE [None]
  - CHEST DISCOMFORT [None]
  - INSOMNIA [None]
  - JOINT SWELLING [None]
  - SINUSITIS [None]
  - URTICARIA [None]
